FAERS Safety Report 7288606-6 (Version None)
Quarter: 2011Q1

REPORT INFORMATION
  Report Type: 
  Country: None (occurrence: None)
  Receive Date: 20110211
  Receipt Date: 20110202
  Transmission Date: 20110831
  Serious: Yes (Death, Hospitalization)
  Sender: FDA-Public Use
  Company Number: JP-AMGEN-JPNCT2011002132

PATIENT
  Age: 70 Year
  Sex: Female
  Weight: 35 kg

DRUGS (12)
  1. NAUZELIN [Concomitant]
     Dosage: UNK
     Route: 048
  2. OXYCONTIN [Concomitant]
     Dosage: UNK
     Route: 048
  3. NOVAMIN [Concomitant]
     Dosage: UNK
     Route: 048
  4. PANITUMUMAB [Suspect]
     Dosage: 6 MG/KG, Q2WK
     Route: 041
     Dates: start: 20100909, end: 20100924
  5. GRANISETRON HCL [Concomitant]
     Dosage: UNK
     Route: 042
  6. MAGMITT [Concomitant]
     Dosage: UNK
     Route: 048
  7. DEXART [Concomitant]
     Dosage: UNK
     Route: 042
  8. DUROTEP [Concomitant]
     Dosage: UNK
     Route: 062
  9. TS 1 [Concomitant]
     Indication: COLORECTAL CANCER
     Route: 048
     Dates: start: 20100729, end: 20100924
  10. FLORID [Concomitant]
     Dosage: UNK
     Route: 049
  11. PANITUMUMAB [Suspect]
     Indication: COLORECTAL CANCER
     Dosage: 6 MG/KG, Q2WK
     Route: 041
     Dates: start: 20100729, end: 20100729
  12. IRINOTECAN HYDROCHLORIDE [Concomitant]
     Indication: COLORECTAL CANCER
     Route: 041
     Dates: start: 20100729, end: 20100924

REACTIONS (5)
  - NAUSEA [None]
  - MALAISE [None]
  - STOMATITIS [None]
  - COLORECTAL CANCER [None]
  - DECREASED APPETITE [None]
